FAERS Safety Report 8124180-X (Version None)
Quarter: 2012Q1

REPORT INFORMATION
  Report Type: 
  Country: None (occurrence: None)
  Receive Date: 20120209
  Receipt Date: 20120123
  Transmission Date: 20120608
  Serious: Yes (Hospitalization, Other)
  Sender: FDA-Public Use
  Company Number: US-BAYER-201037139NA

PATIENT
  Age: 44 Year
  Sex: Female
  Weight: 79.365 kg

DRUGS (14)
  1. CIPROFLOXACIN [Concomitant]
     Dosage: UNK
     Dates: start: 20081120
  2. IRON [Concomitant]
  3. YAZ [Suspect]
     Indication: ORAL CONTRACEPTION
     Dosage: UNK UNK, UNK
     Route: 048
     Dates: start: 20080401, end: 20081001
  4. TRAMADOL HCL [Concomitant]
     Dosage: 150 MG, QD
     Dates: start: 20081126
  5. DETROL LA [Concomitant]
     Dosage: 4 MG, UNK
  6. NEURONTIN [Concomitant]
     Dosage: 300 MG, QD
     Dates: start: 20081126
  7. TRAMADOL HCL [Concomitant]
     Dosage: 50 MG, UNK
     Dates: start: 20081108
  8. VESICARE [Concomitant]
  9. NEURONTIN [Concomitant]
     Indication: NERVE COMPRESSION
  10. DETROL [Concomitant]
     Dosage: 20 MG, QD
     Dates: start: 20081126
  11. YAZ [Suspect]
     Indication: MENORRHAGIA
  12. PROZAC [Concomitant]
     Indication: PRODUCT USED FOR UNKNOWN INDICATION
     Dosage: 20 MG, QD
     Dates: start: 20081126
  13. CIPROFLOXACIN [Concomitant]
     Dosage: 250 MG, BID
     Dates: start: 20081107
  14. GABAPENTIN [Concomitant]
     Dosage: 300 MG, UNK

REACTIONS (2)
  - PULMONARY EMBOLISM [None]
  - EMOTIONAL DISTRESS [None]
